FAERS Safety Report 25839502 (Version 2)
Quarter: 2025Q4

REPORT INFORMATION
  Report Type: Report from Study
  Country: KR (occurrence: KR)
  Receive Date: 20250924
  Receipt Date: 20251002
  Transmission Date: 20260119
  Serious: Yes (Hospitalization, Other)
  Sender: SUNOVION
  Company Number: KR-BIAL-BIAL-17296

PATIENT
  Sex: Male
  Weight: 90.1 kg

DRUGS (44)
  1. ESLICARBAZEPINE ACETATE [Suspect]
     Active Substance: ESLICARBAZEPINE ACETATE
     Indication: Epilepsy
     Dosage: 400 MILLIGRAM, QD
     Route: 048
     Dates: start: 20240802, end: 20240808
  2. ESLICARBAZEPINE ACETATE [Suspect]
     Active Substance: ESLICARBAZEPINE ACETATE
     Dosage: 800 MILLIGRAM, QD
     Route: 048
     Dates: start: 20240809, end: 20240817
  3. DEPAKOTE ER [Concomitant]
     Active Substance: DIVALPROEX SODIUM
     Indication: Epilepsy
     Dosage: 1 DOSAGE FORM, BID
     Route: 048
     Dates: start: 20211101, end: 20240818
  4. DEPAKOTE ER [Concomitant]
     Active Substance: DIVALPROEX SODIUM
     Dosage: 2 DOSAGE FORM, BID
     Route: 048
     Dates: start: 20240829
  5. KEPPRA XR [Concomitant]
     Active Substance: LEVETIRACETAM
     Indication: Epilepsy
     Dosage: 1 DOSAGE FORM, BID
     Route: 048
     Dates: start: 20221227, end: 20240818
  6. QUDEXY XR [Concomitant]
     Active Substance: TOPIRAMATE
     Indication: Epilepsy
     Dosage: 1 DOSAGE FORM, BID
     Route: 048
     Dates: start: 20230731, end: 20240818
  7. CLOBAZAM [Concomitant]
     Active Substance: CLOBAZAM
     Indication: Epilepsy
     Dosage: 1 DOSAGE FORM, BID
     Route: 048
     Dates: start: 20240513, end: 20240818
  8. Daihan isotonic sodium chloride [Concomitant]
     Indication: Prophylaxis
     Dosage: 1000 MILLILITER, QD
     Dates: start: 20240818
  9. Daihan isotonic sodium chloride [Concomitant]
     Dosage: 100 MILLILITER, TID
     Dates: start: 20240827, end: 20240829
  10. FAMOTIDINE [Concomitant]
     Active Substance: FAMOTIDINE
     Indication: Prophylaxis
     Dosage: 1 DOSAGE FORM, BID
     Route: 048
     Dates: start: 20240818, end: 20240818
  11. VALPROATE SODIUM [Concomitant]
     Active Substance: VALPROATE SODIUM
     Indication: Epilepsy
     Dosage: 300 MILLIGRAM, 5X /DAY
     Dates: start: 20240819, end: 20240819
  12. Daihan isotonic sodium chloride [Concomitant]
     Indication: Product used for unknown indication
     Dosage: 100 MILLILITER, 5X /DAY
     Dates: start: 20240819, end: 20240826
  13. Epilatam [Concomitant]
     Indication: Epilepsy
     Dosage: 1000 MILLIGRAM, 5X / DAY
     Dates: start: 20240819, end: 20240828
  14. Daihan isotonic sodium chloride [Concomitant]
     Indication: Product used for unknown indication
     Dosage: 100 MILLILITER, 5X /DAY
     Dates: start: 20240819, end: 20240828
  15. Daihan isotonic sodium chloride [Concomitant]
     Dosage: 100 MILLILITER, 5X /DAY
     Dates: start: 20240819, end: 20240828
  16. DUPIXENT [Concomitant]
     Active Substance: DUPILUMAB
     Indication: Dermatitis atopic
     Dosage: 300 MILLIGRAM, QD
     Route: 058
     Dates: start: 20240809, end: 20240809
  17. DUPIXENT [Concomitant]
     Active Substance: DUPILUMAB
     Dosage: 300 MILLIGRAM, QD
     Route: 058
     Dates: start: 20240906, end: 20240906
  18. Daihan isotonic sodium chloride [Concomitant]
     Indication: Product used for unknown indication
     Dosage: 100 MILLILITER, QD
     Dates: start: 20240819, end: 20240828
  19. Daihan isotonic sodium chloride [Concomitant]
     Dosage: 100 MILLILITER, BID
     Dates: start: 20240819, end: 20240828
  20. VALPROATE SODIUM [Concomitant]
     Active Substance: VALPROATE SODIUM
     Indication: Epilepsy
     Dosage: 600 MILLIGRAM, BID
     Dates: start: 20240820, end: 20240826
  21. VALPROATE SODIUM [Concomitant]
     Active Substance: VALPROATE SODIUM
     Dosage: 600 MILLIGRAM, TID
     Dates: start: 20240827, end: 20240828
  22. METOCLOPRAMIDE HYDROCHLORIDE [Concomitant]
     Active Substance: METOCLOPRAMIDE HYDROCHLORIDE
     Indication: Hiccups
     Dosage: 10 MILLIGRAM, BID
     Dates: start: 20240820, end: 20240821
  23. TANTUM [Concomitant]
     Active Substance: BENZYDAMINE HYDROCHLORIDE
     Indication: Prophylaxis
     Dosage: 15 MILLILITER, TID
     Route: 048
     Dates: start: 20240821, end: 20240830
  24. PROPACETAMOL HYDROCHLORIDE [Concomitant]
     Active Substance: PROPACETAMOL HYDROCHLORIDE
     Indication: Stevens-Johnson syndrome
     Dosage: 2 GRAM, QD
     Dates: start: 20240821, end: 20240822
  25. Tylicol [Concomitant]
     Indication: Stevens-Johnson syndrome
     Dosage: 1 GRAM, QD
     Dates: start: 20240821, end: 20240821
  26. ACETYLCYSTEINE [Concomitant]
     Active Substance: ACETYLCYSTEINE
     Indication: Increased bronchial secretion
     Dosage: 600 MILLIGRAM, BID
     Dates: start: 20240822, end: 20240828
  27. DEXAMETHASONE [Concomitant]
     Active Substance: DEXAMETHASONE
     Indication: Stevens-Johnson syndrome
     Dosage: 3 MILLIGRAM, QD
     Dates: start: 20240824, end: 20240824
  28. DEXAMETHASONE [Concomitant]
     Active Substance: DEXAMETHASONE
     Dosage: 5 MILLIGRAM, QD
     Dates: start: 20240824, end: 20240827
  29. DEXAMETHASONE [Concomitant]
     Active Substance: DEXAMETHASONE
     Dosage: 2 MILLIGRAM, BID
     Dates: start: 20240822, end: 20240826
  30. LEVOFLOXACIN [Concomitant]
     Active Substance: LEVOFLOXACIN
     Indication: Stevens-Johnson syndrome
     Dosage: UNK, UNKNOWN (0.02 BOTTLE)
  31. Hyaluni [Concomitant]
     Indication: Stevens-Johnson syndrome
     Dosage: UNK, UNKNOWN (0.02 BOTTLE)
  32. Predbell [Concomitant]
     Indication: Stevens-Johnson syndrome
     Dosage: UNK, UNKNOWN (0.02 BOTTLE)
  33. Esroban [Concomitant]
     Indication: Stevens-Johnson syndrome
     Dosage: UNK, UNKNOWN (0.02 BOTTLE 1 APPLICATION TO LESION SITE)
  34. Fotagel [Concomitant]
     Indication: Diarrhoea
     Dosage: UNK, UNKNOWN (1 PKG (NOT FURTHER SPECIFIED))
     Route: 048
     Dates: start: 20240823, end: 20240825
  35. Dexamethasone daewon [Concomitant]
     Indication: Stevens-Johnson syndrome
     Dosage: 3 MILLIGRAM, QD
     Dates: start: 20240824, end: 20240824
  36. Dexamethasone daewon [Concomitant]
     Dosage: 5 MILLIGRAM, QD
     Dates: start: 20240824, end: 20240827
  37. Dexamethasone daewon [Concomitant]
     Dosage: 2 MILLIGRAM, BID
     Dates: start: 20240825, end: 20240825
  38. Distilled water [Concomitant]
     Indication: Stevens-Johnson syndrome
     Dosage: 1000 MILLILITER, QD
     Dates: start: 20240824, end: 20240827
  39. ATIVAN [Concomitant]
     Active Substance: LORAZEPAM
     Indication: Epilepsy
     Dosage: 2 MILLIGRAM, QD
     Dates: start: 20240830, end: 20240830
  40. ATIVAN [Concomitant]
     Active Substance: LORAZEPAM
     Dosage: 2 MILLIGRAM, TID
     Dates: start: 20240825, end: 20240825
  41. TOPAMAX [Concomitant]
     Active Substance: TOPIRAMATE
     Indication: Epilepsy
     Dosage: 100 MILLIGRAM, BID
     Route: 048
     Dates: start: 20240826
  42. OFLOXACIN [Concomitant]
     Active Substance: OFLOXACIN
     Indication: Stevens-Johnson syndrome
     Dosage: UNK, UNKNOWN (0.02 BOTTLE)
  43. CLOBAZAM [Concomitant]
     Active Substance: CLOBAZAM
     Indication: Epilepsy
     Dosage: 5 MILLIGRAM, BID
     Route: 048
     Dates: start: 20240827
  44. KEPPRA [Concomitant]
     Active Substance: LEVETIRACETAM
     Indication: Epilepsy
     Dosage: 1 DOSAGE FORM, BID
     Route: 048
     Dates: start: 20240829

REACTIONS (5)
  - Stevens-Johnson syndrome [Recovering/Resolving]
  - Skin abrasion [Recovered/Resolved]
  - Hiccups [Recovered/Resolved]
  - Increased bronchial secretion [Recovered/Resolved]
  - Diarrhoea [Recovered/Resolved]

NARRATIVE: CASE EVENT DATE: 20240815
